FAERS Safety Report 25250667 (Version 3)
Quarter: 2025Q2

REPORT INFORMATION
  Report Type: Spontaneous
  Country: GB (occurrence: GB)
  Receive Date: 20250429
  Receipt Date: 20250523
  Transmission Date: 20250716
  Serious: Yes (Hospitalization, Other)
  Sender: AUROBINDO
  Company Number: GB-AUROBINDO-AUR-APL-2025-022683

PATIENT
  Age: 64 Year
  Sex: Female

DRUGS (1)
  1. CLARITHROMYCIN [Suspect]
     Active Substance: CLARITHROMYCIN
     Indication: Helicobacter infection
     Route: 065

REACTIONS (6)
  - Neurotoxicity [Recovering/Resolving]
  - Partial seizures [Recovering/Resolving]
  - Behaviour disorder [Recovering/Resolving]
  - Emotional disorder [Recovering/Resolving]
  - Agitation [Recovering/Resolving]
  - Encephalopathy [Recovering/Resolving]
